FAERS Safety Report 5962468-9 (Version None)
Quarter: 2008Q4

REPORT INFORMATION
  Report Type: 
  Country: None (occurrence: None)
  Receive Date: 20081121
  Receipt Date: 20081114
  Transmission Date: 20090506
  Serious: Yes (Hospitalization)
  Sender: FDA-Public Use
  Company Number: PHHO2008US13630

PATIENT
  Sex: Female

DRUGS (4)
  1. BLINDED ALISKIREN ALI+TAB [Suspect]
     Indication: ACUTE CORONARY SYNDROME
     Dosage: CODE NOT BROKEN
     Route: 048
     Dates: start: 20081031
  2. BLINDED NO TREATMENT RECEIVED NOMED [Suspect]
     Indication: ACUTE CORONARY SYNDROME
     Dosage: CODE NOT BROKEN
     Route: 048
     Dates: start: 20081031
  3. BLINDED PLACEBO COMP-PLA+ [Suspect]
     Indication: ACUTE CORONARY SYNDROME
     Dosage: CODE NOT BROKEN
     Route: 048
     Dates: start: 20081031
  4. PLACEBO OR VALSARTAN [Suspect]
     Indication: ACUTE CORONARY SYNDROME
     Dosage: CODE NOT BROKEN
     Route: 048
     Dates: start: 20081031

REACTIONS (2)
  - LUNG INFILTRATION [None]
  - PNEUMONIA [None]
